FAERS Safety Report 7772191-6 (Version None)
Quarter: 2011Q3

REPORT INFORMATION
  Report Type: 
  Country: None (occurrence: None)
  Receive Date: 20110922
  Receipt Date: 20101115
  Transmission Date: 20111222
  Serious: No
  Sender: FDA-Public Use
  Company Number: US-ASTRAZENECA-2010SE54554

PATIENT
  Age: 31 Year
  Sex: Male
  Weight: 72.6 kg

DRUGS (3)
  1. LITHIUM [Concomitant]
  2. AMPHETAMINE SALT [Concomitant]
  3. SEROQUEL XR [Suspect]
     Indication: BIPOLAR DISORDER
     Route: 048
     Dates: start: 20100901

REACTIONS (6)
  - ABNORMAL BEHAVIOUR [None]
  - DRUG DOSE OMISSION [None]
  - INSOMNIA [None]
  - MANIA [None]
  - THINKING ABNORMAL [None]
  - OBSESSIVE-COMPULSIVE DISORDER [None]
